FAERS Safety Report 5329696-7 (Version None)
Quarter: 2007Q2

REPORT INFORMATION
  Report Type: 
  Country: None (occurrence: None)
  Receive Date: 20070515
  Receipt Date: 20070503
  Transmission Date: 20071010
  Serious: Yes (Hospitalization)
  Sender: FDA-Public Use
  Company Number: GXKR2007DE04031

PATIENT
  Age: 15 Year
  Sex: Male

DRUGS (3)
  1. DEXAMETHASONE [Suspect]
  2. PEG-L-ASPARAGINASE (PEGASPARGASE) [Suspect]
  3. CHEMOTHERAPEUTICS NOS [Concomitant]

REACTIONS (9)
  - CEREBRAL THROMBOSIS [None]
  - CONVULSION [None]
  - DISEASE PROGRESSION [None]
  - EMBOLISM [None]
  - GLAUCOMA [None]
  - HYPERAMMONAEMIA [None]
  - HYPERTRIGLYCERIDAEMIA [None]
  - PARTIAL SEIZURES [None]
  - VOMITING [None]
